FAERS Safety Report 9832647 (Version 2)
Quarter: 2014Q1

REPORT INFORMATION
  Report Type: Spontaneous
  Country: CZ (occurrence: CZ)
  Receive Date: 20140121
  Receipt Date: 20140129
  Transmission Date: 20141002
  Serious: Yes (Life-Threatening, Hospitalization, Disabling)
  Sender: FDA-Public Use
  Company Number: CZ-B.I. PHARMACEUTICALS,INC./RIDGEFIELD-2014-BI-02387CZ

PATIENT
  Sex: Male
  Weight: 95.9 kg

DRUGS (11)
  1. PRADAXA [Suspect]
     Indication: ATRIAL FIBRILLATION
     Dosage: 220 MG
     Route: 048
  2. CARVEDIOL (CARVEDILOLUM) [Concomitant]
     Indication: HYPERTENSION
     Dosage: 25 MG
     Route: 048
  3. SPIRONOLAKTON [Concomitant]
     Indication: HYPERTENSION
  4. FUROSEMID [Concomitant]
     Indication: HYPERTENSION
     Dosage: 125 MG
     Route: 048
  5. METFORMIN [Concomitant]
     Indication: TYPE 2 DIABETES MELLITUS
     Dosage: 1700 MG
  6. DICLOFENAC [Concomitant]
     Indication: OSTEOARTHRITIS
     Dosage: 220 MCG
     Route: 048
  7. WARFARIN [Concomitant]
     Indication: ATRIAL FIBRILLATION
     Route: 048
     Dates: start: 200810
  8. GOPTEN (TRANDOLAPRIL) [Concomitant]
     Dosage: 1 MG
     Route: 048
  9. MILURIT (ALLOPURINOL) [Concomitant]
     Dosage: 200 MG
     Route: 048
  10. NEUROL (ALPRAZOLAM) [Concomitant]
     Dosage: 0.25 MG
     Route: 048
  11. SIOFOR 850 [Concomitant]
     Dosage: 0.85 MG
     Route: 048

REACTIONS (1)
  - Cerebrovascular accident [Recovered/Resolved]
